FAERS Safety Report 9638901 (Version 1)
Quarter: 2013Q4

REPORT INFORMATION
  Report Type: Spontaneous
  Country: US (occurrence: US)
  Receive Date: 20131022
  Receipt Date: 20131022
  Transmission Date: 20140711
  Serious: No
  Sender: FDA-Public Use
  Company Number: US-BRISTOL-MYERS SQUIBB COMPANY-19104728

PATIENT
  Age: 68 Year
  Sex: Male
  Weight: 99.77 kg

DRUGS (11)
  1. ELIQUIS [Suspect]
     Indication: ATRIAL FIBRILLATION
     Dates: start: 2013
  2. LASIX [Concomitant]
  3. TRIAMTERENE [Concomitant]
  4. HYDROCHLOROTHIAZIDE [Concomitant]
  5. ATORVASTATIN [Concomitant]
  6. ASPIRIN [Concomitant]
  7. MULTIVITAMIN [Concomitant]
  8. AMIODARONE [Concomitant]
  9. LOSARTAN [Concomitant]
  10. FLOMAX [Concomitant]
  11. CARVEDILOL [Concomitant]

REACTIONS (1)
  - Drug dose omission [Unknown]
